FAERS Safety Report 14712603 (Version 1)
Quarter: 2018Q2

REPORT INFORMATION
  Report Type: Spontaneous
  Country: GB (occurrence: GB)
  Receive Date: 20180404
  Receipt Date: 20180404
  Transmission Date: 20180711
  Serious: Yes (Death, Other)
  Sender: FDA-Public Use
  Company Number: GB-AUROBINDO-AUR-APL-2018-017837

PATIENT
  Sex: Male

DRUGS (6)
  1. COLISTIN [Suspect]
     Active Substance: COLISTIN
     Indication: ENTEROCOCCAL INFECTION
     Dosage: 2 MU ()
     Route: 065
  2. FLUCONAZOLE. [Suspect]
     Active Substance: FLUCONAZOLE
     Indication: SEPSIS
     Dosage: UNK
     Route: 065
  3. TYGACIL [Suspect]
     Active Substance: TIGECYCLINE
     Indication: SEPSIS
     Dosage: ()
     Route: 065
  4. TYGACIL [Suspect]
     Active Substance: TIGECYCLINE
     Indication: ENTEROCOCCAL INFECTION
     Dosage: 100 MG, UNK
     Route: 065
  5. COLISTIN [Suspect]
     Active Substance: COLISTIN
     Indication: SEPSIS
     Dosage: 3 MU TDS (3)
     Route: 065
  6. FLUCONAZOLE. [Suspect]
     Active Substance: FLUCONAZOLE
     Dosage: UNK ()
     Route: 065

REACTIONS (4)
  - Abdominal adhesions [Unknown]
  - Drug ineffective [Fatal]
  - Multiple organ dysfunction syndrome [Fatal]
  - Gallstone ileus [Unknown]

NARRATIVE: CASE EVENT DATE: 20180301
